FAERS Safety Report 18385706 (Version 1)
Quarter: 2020Q4

REPORT INFORMATION
  Report Type: Spontaneous
  Country: ES (occurrence: ES)
  Receive Date: 20201015
  Receipt Date: 20201015
  Transmission Date: 20210114
  Serious: Yes (Hospitalization)
  Sender: FDA-Public Use
  Company Number: ES-AUROBINDO-AUR-APL-2020-051933

PATIENT
  Age: 69 Year
  Sex: Male
  Weight: 56 kg

DRUGS (10)
  1. DOCETAXEL. [Suspect]
     Active Substance: DOCETAXEL
     Indication: GASTRIC CANCER
     Dosage: 77 MILLIGRAM, CYCLICAL (ONCE EVERY 2 WEEKS)
     Route: 042
     Dates: start: 20200803
  2. DOCETAXEL. [Suspect]
     Active Substance: DOCETAXEL
     Dosage: 77 MILLIGRAM, CYCLICAL (ONCE EVERY 2 WEEKS)
     Route: 042
     Dates: start: 20200826, end: 20200826
  3. OXALIPLATIN. [Suspect]
     Active Substance: OXALIPLATIN
     Dosage: 130 MILLIGRAM, CYCLICAL (ONCE EVERY 2 WEEKS)
     Route: 042
     Dates: start: 20200826, end: 20200826
  4. FLUOROURACIL. [Suspect]
     Active Substance: FLUOROURACIL
     Indication: GASTRIC CANCER
     Dosage: 4030 MILLIGRAM, CYCLICAL (ONCE EVERY 2 WEEKS)
     Route: 042
     Dates: start: 20200803
  5. AVELUMAB [Concomitant]
     Active Substance: AVELUMAB
     Indication: GASTRIC CANCER
     Dosage: 552 MILLIGRAM, CYCLICAL (ONCE EVERY 2 WEEKS)
     Route: 042
     Dates: start: 20200803
  6. AVELUMAB [Concomitant]
     Active Substance: AVELUMAB
     Dosage: 552 MILLIGRAM, CYCLICAL (ONCE EVERY 2 WEEKS)
     Route: 042
     Dates: start: 20200826, end: 20200826
  7. FLUOROURACIL. [Suspect]
     Active Substance: FLUOROURACIL
     Dosage: 4030 MILLIGRAM, CYCLICAL (ONCE EVERY 2 WEEKS)
     Route: 042
     Dates: start: 20200826, end: 20200826
  8. OXALIPLATIN. [Suspect]
     Active Substance: OXALIPLATIN
     Indication: GASTRIC CANCER
     Dosage: 130 MILLIGRAM, CYCLICAL (ONCE EVERY 2 WEEKS)
     Route: 042
     Dates: start: 20200803
  9. LEUCOVORIN. [Suspect]
     Active Substance: LEUCOVORIN
     Indication: GASTRIC CANCER
     Dosage: 620 MILLIGRAM, CYCLICAL (ONCE EVERY 2 WEEKS)
     Route: 042
     Dates: start: 20200826, end: 20200826
  10. LEUCOVORIN. [Suspect]
     Active Substance: LEUCOVORIN
     Dosage: 620 MILLIGRAM, CYCLICAL (ONCE EVERY 2 WEEKS)
     Route: 042
     Dates: start: 20200803

REACTIONS (1)
  - General physical health deterioration [Recovered/Resolved]

NARRATIVE: CASE EVENT DATE: 20200901
